FAERS Safety Report 10011490 (Version 1)
Quarter: 2014Q1

REPORT INFORMATION
  Report Type: Spontaneous
  Country: US (occurrence: US)
  Receive Date: 20140314
  Receipt Date: 20140314
  Transmission Date: 20141002
  Serious: No
  Sender: FDA-Public Use
  Company Number: US-ENDO PHARMACEUTICALS INC.-OXYC20130010

PATIENT
  Sex: Female

DRUGS (2)
  1. OXYCODONE HCL [Suspect]
     Indication: BACK PAIN
     Dosage: UNKNOWN
     Route: 048
     Dates: start: 2013, end: 2013
  2. OPANA ER 10MG [Concomitant]
     Indication: BACK PAIN
     Route: 048
     Dates: start: 201212, end: 2013

REACTIONS (1)
  - Feeling abnormal [Unknown]
